FAERS Safety Report 15213430 (Version 2)
Quarter: 2018Q4

REPORT INFORMATION
  Report Type: Report from Study
  Country: None (occurrence: US)
  Receive Date: 20180730
  Receipt Date: 20181010
  Transmission Date: 20190204
  Serious: Yes (Hospitalization)
  Sender: FDA-Public Use
  Company Number: US-ABBVIE-18K-163-2432736-00

PATIENT
  Age: 47 Year
  Sex: Female
  Weight: 90.8 kg

DRUGS (3)
  1. HUMIRA [Suspect]
     Active Substance: ADALIMUMAB
     Indication: PSORIASIS
     Route: 058
     Dates: start: 20180503, end: 20180503
  2. HUMIRA [Suspect]
     Active Substance: ADALIMUMAB
     Route: 058
     Dates: start: 20180524, end: 20180524
  3. HUMIRA [Suspect]
     Active Substance: ADALIMUMAB
     Route: 058
     Dates: start: 20180510, end: 20180510

REACTIONS (5)
  - Pharyngitis streptococcal [Unknown]
  - Coma [Recovered/Resolved]
  - Weight decreased [Unknown]
  - Renal impairment [Unknown]
  - Lung infection [Unknown]

NARRATIVE: CASE EVENT DATE: 2018
